FAERS Safety Report 10370754 (Version 1)
Quarter: 2014Q3

REPORT INFORMATION
  Report Type: Spontaneous
  Country: FR (occurrence: FR)
  Receive Date: 20140808
  Receipt Date: 20140808
  Transmission Date: 20150326
  Serious: Yes (Hospitalization)
  Sender: FDA-Public Use
  Company Number: FR-SA-2014SA104110

PATIENT
  Age: 82 Year
  Sex: Male

DRUGS (14)
  1. RISPERDAL [Concomitant]
     Active Substance: RISPERIDONE
     Dosage: FORM: ORO
  2. DONEPEZIL [Concomitant]
     Active Substance: DONEPEZIL
  3. DIFFU K [Concomitant]
     Active Substance: POTASSIUM CHLORIDE
  4. RIMACTAN [Suspect]
     Active Substance: RIFAMPIN
     Indication: PRODUCT USED FOR UNKNOWN INDICATION
     Route: 048
     Dates: start: 20140711, end: 20140715
  5. TERCIAN [Concomitant]
     Active Substance: CYAMEMAZINE
     Dosage: STRENGTH 25 MG
  6. RIFADINE [Suspect]
     Active Substance: RIFAMPIN
     Indication: PRODUCT USED FOR UNKNOWN INDICATION
     Route: 048
     Dates: start: 20140701, end: 20140710
  7. ZYLORIC [Concomitant]
     Active Substance: ALLOPURINOL
  8. INEXIUM [Suspect]
     Active Substance: ESOMEPRAZOLE
     Indication: PRODUCT USED FOR UNKNOWN INDICATION
     Route: 048
     Dates: start: 20140703, end: 20140716
  9. DEPAMIDE [Concomitant]
     Active Substance: VALPROMIDE
     Dosage: STRENGTH 300 MG
  10. LOVENOX [Concomitant]
     Active Substance: ENOXAPARIN SODIUM
     Dosage: 4000IU/0.4ML
  11. LASILIX [Concomitant]
     Active Substance: FUROSEMIDE
  12. CALCIPARINE [Concomitant]
     Active Substance: HEPARIN CALCIUM
     Dosage: 500IU/0.5ML
     Route: 058
  13. KARDEGIC [Concomitant]
     Active Substance: ASPIRIN LYSINE
     Dosage: STRENGTH 75 MG
  14. ORBENINE [Concomitant]
     Active Substance: CLOXACILLIN SODIUM

REACTIONS (2)
  - Thrombocytopenia [Recovered/Resolved]
  - Anaemia [Recovering/Resolving]

NARRATIVE: CASE EVENT DATE: 20140703
